FAERS Safety Report 13618475 (Version 1)
Quarter: 2017Q2

REPORT INFORMATION
  Report Type: Spontaneous
  Country: SE (occurrence: SE)
  Receive Date: 20170606
  Receipt Date: 20170606
  Transmission Date: 20170830
  Serious: Yes (Death, Other)
  Sender: FDA-Public Use
  Company Number: SE-NORTHSTAR HEALTHCARE HOLDINGS-SE-2017NSR000161

PATIENT
  Age: 20 Year
  Sex: Female

DRUGS (1)
  1. TRAMADOL HYDROCHLORIDE. [Suspect]
     Active Substance: TRAMADOL HYDROCHLORIDE
     Indication: PRODUCT USED FOR UNKNOWN INDICATION
     Dosage: UNK

REACTIONS (4)
  - Pulmonary oedema [Unknown]
  - Toxicity to various agents [Fatal]
  - Brain oedema [Unknown]
  - Multi-organ disorder [Unknown]
